FAERS Safety Report 7426829-3 (Version None)
Quarter: 2011Q2

REPORT INFORMATION
  Report Type: 
  Country: None (occurrence: None)
  Receive Date: 20110420
  Receipt Date: 20110414
  Transmission Date: 20111010
  Serious: No
  Sender: FDA-Public Use
  Company Number: US-B.I. PHARMACEUTICALS,INC./RIDGEFIELD-2011-BP-06535BP

PATIENT
  Sex: Male

DRUGS (5)
  1. PRADAXA [Suspect]
     Indication: ATRIAL FIBRILLATION
     Dosage: 300 MG
     Route: 048
     Dates: start: 20110207
  2. ZOLAMIDE [Concomitant]
     Indication: GLAUCOMA
  3. XALATAN [Concomitant]
     Indication: GLAUCOMA
  4. SIMVASTATIN [Concomitant]
     Indication: BLOOD CHOLESTEROL INCREASED
  5. MESCALINE [Concomitant]
     Indication: VERTIGO

REACTIONS (4)
  - SKIN BURNING SENSATION [None]
  - PARAESTHESIA [None]
  - HAEMOPTYSIS [None]
  - PRURITUS [None]
